FAERS Safety Report 9782399 (Version 1)
Quarter: 2013Q4

REPORT INFORMATION
  Report Type: Spontaneous
  Country: FR (occurrence: FR)
  Receive Date: 20131226
  Receipt Date: 20131226
  Transmission Date: 20140711
  Serious: Yes (Hospitalization)
  Sender: FDA-Public Use
  Company Number: PHHY2013FR149278

PATIENT
  Age: 82 Year
  Sex: Male

DRUGS (1)
  1. LAMISIL [Suspect]
     Dosage: 1 DF, QD
     Dates: start: 20130810

REACTIONS (4)
  - Eosinophilic colitis [Recovered/Resolved]
  - Subileus [Recovering/Resolving]
  - Impaired gastric emptying [Recovering/Resolving]
  - Eosinophilia [Recovering/Resolving]
